FAERS Safety Report 8889976 (Version 1)
Quarter: 2012Q4

REPORT INFORMATION
  Report Type: 
  Country: US (occurrence: US)
  Receive Date: 20121107
  Receipt Date: 20121107
  Transmission Date: 20130627
  Serious: No
  Sender: FDA-Public Use
  Company Number: US-PFIZER INC-2012277115

PATIENT
  Age: 44 Year
  Sex: Male
  Weight: 74.83 kg

DRUGS (9)
  1. LYRICA [Suspect]
     Indication: FIBROMYALGIA
     Dosage: 100 mg, 3x/day
     Route: 048
     Dates: start: 201208
  2. PROMETHAZINE [Concomitant]
     Dosage: 25 mg, as needed
  3. LISINOPRIL [Concomitant]
     Dosage: 20 mg, 1x/day
  4. ASPIRIN [Concomitant]
     Dosage: 81 mg, 1x/day
  5. PREVACID [Concomitant]
     Dosage: 40 mg, 1x/day
  6. MULTIVITAMINS [Concomitant]
     Dosage: UNK, 1x/day
  7. NEURONTIN [Concomitant]
     Dosage: 300 mg, 1x/day
  8. KLONOPIN [Concomitant]
     Dosage: 1 mg, 3x/day
  9. LORTAB [Concomitant]
     Dosage: UNK, 3x/day

REACTIONS (1)
  - Tinnitus [Not Recovered/Not Resolved]
